FAERS Safety Report 8583873-0 (Version None)
Quarter: 2012Q3

REPORT INFORMATION
  Report Type: 
  Country: None (occurrence: None)
  Receive Date: 20120810
  Receipt Date: 20120801
  Transmission Date: 20120928
  Serious: Yes (Other)
  Sender: FDA-Public Use
  Company Number: JP-009507513-2011SP000080

PATIENT

DRUGS (6)
  1. FLUNITRAZEPAM [Suspect]
     Dosage: 4 DF, ONCE
     Route: 048
  2. ZOLPIDEM TARTRATE [Suspect]
     Dosage: 8 DF, ONCE
     Route: 048
  3. MIRTAZAPINE [Suspect]
     Indication: PRODUCT USED FOR UNKNOWN INDICATION
     Dosage: 30 MG, QD
     Route: 048
  4. ZOLPIDEM TARTRATE [Suspect]
     Indication: PRODUCT USED FOR UNKNOWN INDICATION
     Dosage: UNK UNK, UNKNOWN
     Route: 048
  5. MIRTAZAPINE [Suspect]
     Dosage: 8 DF, ONCE
     Route: 048
  6. FLUNITRAZEPAM [Suspect]
     Indication: PRODUCT USED FOR UNKNOWN INDICATION
     Dosage: UNK UNK, UNKNOWN
     Route: 048

REACTIONS (1)
  - OVERDOSE [None]
